FAERS Safety Report 7474673-3 (Version None)
Quarter: 2011Q2

REPORT INFORMATION
  Report Type: 
  Country: None (occurrence: None)
  Receive Date: 20110509
  Receipt Date: 20110509
  Transmission Date: 20111010
  Serious: Yes (Hospitalization, Disabling)
  Sender: FDA-Public Use
  Company Number: None

PATIENT
  Age: 56 Year
  Sex: Female
  Weight: 86.4 kg

DRUGS (22)
  1. ALENDRONATE SODIUM [Suspect]
     Indication: OSTEOPENIA
     Dosage: 70 MG 1X WEEK ORALLY
     Route: 048
     Dates: start: 20080428, end: 20110301
  2. PLAQUENIL [Concomitant]
  3. VICODIN [Concomitant]
  4. BONIVA [Suspect]
     Indication: OSTEOPENIA
     Dosage: 150MG  1X MONTH ORALLY
     Route: 048
     Dates: start: 20071001, end: 20080301
  5. PRILOSEC [Concomitant]
  6. GINKO BILBOA -BILOBA- [Concomitant]
  7. TRAMADOL HCL [Concomitant]
  8. MULTI-VITAMIN [Concomitant]
  9. MAGNESIUM CITRATE [Concomitant]
  10. NIASPAN [Concomitant]
  11. VIT D [Concomitant]
  12. QOQ10 [Concomitant]
  13. ZOCOR [Concomitant]
  14. FISH OIL [Concomitant]
  15. CALCIUM CARBONATE [Concomitant]
  16. HI ACTIVES TART CHERRY ACTIVES [Concomitant]
  17. NAPROSYN [Concomitant]
  18. RESTASIS [Concomitant]
  19. ASPIRIN [Concomitant]
  20. ESTRACE [Concomitant]
  21. VITAMIN B-12 [Concomitant]
  22. VITAMIN D [Concomitant]

REACTIONS (4)
  - GROIN PAIN [None]
  - ARTHRALGIA [None]
  - PAIN IN EXTREMITY [None]
  - FEMUR FRACTURE [None]
